FAERS Safety Report 23354913 (Version 1)
Quarter: 2024Q1

REPORT INFORMATION
  Report Type: Spontaneous
  Country: FR (occurrence: FR)
  Receive Date: 20240101
  Receipt Date: 20240101
  Transmission Date: 20240410
  Serious: Yes (Death, Other)
  Sender: FDA-Public Use
  Company Number: FR-AFSSAPS-TS2023001659

PATIENT
  Age: 64 Year
  Sex: Male
  Weight: 120 kg

DRUGS (7)
  1. FUROSEMIDE [Suspect]
     Active Substance: FUROSEMIDE
     Indication: Hypertension
     Dosage: 500 MILLIGRAM, ONCE A DAY
     Route: 048
     Dates: start: 20230804
  2. CITALOPRAM [Suspect]
     Active Substance: CITALOPRAM HYDROBROMIDE
     Indication: Depression
     Dosage: 20 MILLIGRAM, ONCE A DAY
     Route: 048
     Dates: start: 20230804
  3. ROSUVASTATIN [Suspect]
     Active Substance: ROSUVASTATIN
     Indication: Dyslipidaemia
     Dosage: 5 MILLIGRAM, ONCE A DAY
     Route: 048
     Dates: start: 20230804
  4. ESIDREX [Suspect]
     Active Substance: HYDROCHLOROTHIAZIDE
     Indication: Hypertension
     Dosage: 12.5 MILLIGRAM, ONCE A DAY
     Route: 048
     Dates: start: 20230804
  5. COVERAM [Suspect]
     Active Substance: AMLODIPINE\PERINDOPRIL
     Indication: Hypertension
     Dosage: 1 DOSAGE FORM, ONCE A DAY
     Route: 048
     Dates: start: 20230804
  6. SPIRONOLACTONE [Concomitant]
     Active Substance: SPIRONOLACTONE
     Indication: Hypertension
     Dosage: 75 MILLIGRAM, ONCE A DAY
     Route: 048
     Dates: start: 20230627
  7. POTASSIUM CHLORIDE [Concomitant]
     Active Substance: POTASSIUM CHLORIDE
     Indication: Product used for unknown indication
     Dosage: 1 DOSAGE FORM TOTAL
     Route: 048
     Dates: start: 20230627

REACTIONS (3)
  - Acute kidney injury [Fatal]
  - Anuria [Fatal]
  - Vasoplegia syndrome [Fatal]

NARRATIVE: CASE EVENT DATE: 20230822
